FAERS Safety Report 14123814 (Version 1)
Quarter: 2017Q4

REPORT INFORMATION
  Report Type: Spontaneous
  Country: US (occurrence: US)
  Receive Date: 20171025
  Receipt Date: 20171025
  Transmission Date: 20180321
  Serious: No
  Sender: FDA-Public Use
  Company Number: US-GALDERMA-US16008245

PATIENT
  Age: 48 Year
  Sex: Female

DRUGS (4)
  1. CAPEX [Suspect]
     Active Substance: FLUOCINOLONE ACETONIDE
     Indication: PSORIASIS
     Dosage: 0.01%
     Route: 061
     Dates: start: 2009, end: 2014
  2. FLUOCINOLONE ACETONIDE 0.01% [Concomitant]
     Active Substance: FLUOCINOLONE ACETONIDE
     Indication: PSORIASIS
  3. FLUOCINOLONE ACETONIDE 0.01% [Concomitant]
     Active Substance: FLUOCINOLONE ACETONIDE
     Indication: THERAPEUTIC SKIN CARE TOPICAL
     Dosage: 0.01%
     Route: 061
  4. NOXZEMA [Concomitant]
     Active Substance: SALICYLIC ACID
     Indication: THERAPEUTIC SKIN CARE TOPICAL
     Route: 061

REACTIONS (1)
  - Product use in unapproved indication [Not Recovered/Not Resolved]
